FAERS Safety Report 7110399-3 (Version None)
Quarter: 2010Q4

REPORT INFORMATION
  Report Type: 
  Country: None (occurrence: None)
  Receive Date: 20101118
  Receipt Date: 20101109
  Transmission Date: 20110411
  Serious: Yes (Hospitalization)
  Sender: FDA-Public Use
  Company Number: PHHO2005US19444

PATIENT
  Sex: Male
  Weight: 11.03 kg

DRUGS (4)
  1. ELIDEL [Suspect]
     Indication: DERMATITIS ATOPIC
     Dosage: APPLIED TWICE DAILY
     Route: 061
     Dates: start: 20050228
  2. IBUPROFEN [Concomitant]
     Indication: TEETHING
  3. AMILORIDE HYDROCHLORIDE [Concomitant]
     Indication: DIABETES INSIPIDUS
  4. HYDROCHLOROTHIAZDE TAB [Concomitant]
     Indication: DIABETES INSIPIDUS

REACTIONS (4)
  - OTITIS MEDIA [None]
  - PHARYNGITIS [None]
  - PYREXIA [None]
  - UPPER RESPIRATORY TRACT INFECTION [None]
